FAERS Safety Report 20079221 (Version 4)
Quarter: 2024Q3

REPORT INFORMATION
  Report Type: Report from Study
  Country: US (occurrence: US)
  Receive Date: 20211117
  Receipt Date: 20240925
  Transmission Date: 20241016
  Serious: Yes (Other)
  Sender: GLAXOSMITHKLINE
  Company Number: US-GLAXOSMITHKLINE-US2021AMR231081

PATIENT
  Sex: Female

DRUGS (2)
  1. NIRAPARIB [Suspect]
     Active Substance: NIRAPARIB
     Indication: Fallopian tube cancer
     Dosage: 100 MG, QD
     Dates: start: 20211031, end: 202111
  2. AMLODIPINE [Concomitant]
     Active Substance: AMLODIPINE BESYLATE
     Indication: Product used for unknown indication
     Dosage: UNK

REACTIONS (11)
  - Neutropenia [Not Recovered/Not Resolved]
  - Chronic kidney disease [Unknown]
  - Nausea [Unknown]
  - Myalgia [Unknown]
  - Dysstasia [Unknown]
  - Asthenia [Unknown]
  - Hypertension [Unknown]
  - Red blood cell count decreased [Unknown]
  - Loss of personal independence in daily activities [Unknown]
  - Glomerular filtration rate decreased [Not Recovered/Not Resolved]
  - Off label use [Unknown]
